FAERS Safety Report 13894354 (Version 4)
Quarter: 2017Q3

REPORT INFORMATION
  Report Type: Report from Study
  Country: None (occurrence: CH)
  Receive Date: 20170822
  Receipt Date: 20170911
  Transmission Date: 20171127
  Serious: Yes (Death, Other)
  Sender: FDA-Public Use
  Company Number: CH-ABBVIE-17K-151-2077784-00

PATIENT
  Age: 74 Year
  Sex: Male

DRUGS (4)
  1. CARBIDOPA/LEVODOPA [Concomitant]
     Active Substance: CARBIDOPA\LEVODOPA
     Indication: PRODUCT USED FOR UNKNOWN INDICATION
     Dosage: 50/200MG
  2. SIFROL [Concomitant]
     Active Substance: PRAMIPEXOLE
     Indication: PRODUCT USED FOR UNKNOWN INDICATION
  3. DUODOPA [Suspect]
     Active Substance: CARBIDOPA\LEVODOPA
     Indication: PARKINSON^S DISEASE
     Dosage: MORNING DOSE: 11ML; CONTINUOUS DOSE: 4.2ML/H; EXTRA DOSE: 1ML 16H THERAPY
     Route: 050
     Dates: start: 20170201, end: 20170818
  4. DUODOPA [Suspect]
     Active Substance: CARBIDOPA\LEVODOPA
     Dosage: MORNING DOSE: 11ML; CONTINUOUS DOSE: 4.0ML/H; EXTRA DOSE: 1ML 16H THERAPY
     Route: 050
     Dates: start: 20170818

REACTIONS (14)
  - Ileus [Fatal]
  - Vomiting [Fatal]
  - Stoma site discharge [Unknown]
  - Hyperkinesia [Unknown]
  - Abdominal distension [Fatal]
  - Septic shock [Fatal]
  - Syncope [Fatal]
  - Stoma site erythema [Unknown]
  - Cardio-respiratory arrest [Fatal]
  - Constipation [Fatal]
  - Abdominal rigidity [Fatal]
  - Abdominal pain [Fatal]
  - Weight decreased [Unknown]
  - Malaise [Unknown]

NARRATIVE: CASE EVENT DATE: 2017
